FAERS Safety Report 5474742-3 (Version None)
Quarter: 2007Q4

REPORT INFORMATION
  Report Type: 
  Country: None (occurrence: None)
  Receive Date: 20071002
  Receipt Date: 20070926
  Transmission Date: 20080405
  Serious: Yes (Other)
  Sender: FDA-Public Use
  Company Number: A0638333A

PATIENT
  Age: 84 Year
  Sex: Female

DRUGS (6)
  1. LAMICTAL [Suspect]
     Indication: TRIGEMINAL NEURALGIA
     Dosage: 500MG PER DAY
     Route: 048
  2. NEURONTIN [Concomitant]
  3. EVISTA [Concomitant]
  4. NORVASC [Concomitant]
  5. TOPROL-XL [Concomitant]
  6. LYRICA [Concomitant]

REACTIONS (5)
  - ADVERSE EVENT [None]
  - ALOPECIA [None]
  - DIZZINESS [None]
  - NEOPLASM MALIGNANT [None]
  - RASH MACULAR [None]
